FAERS Safety Report 10528973 (Version 3)
Quarter: 2014Q4

REPORT INFORMATION
  Report Type: Report from Study
  Country: US (occurrence: US)
  Receive Date: 20141020
  Receipt Date: 20141121
  Transmission Date: 20150528
  Serious: Yes (Hospitalization, Other)
  Sender: FDA-Public Use
  Company Number: US-ABBVIE-14P-163-1295416-00

PATIENT
  Age: 54 Year
  Sex: Female
  Weight: 110.32 kg

DRUGS (10)
  1. PROTONIX [Suspect]
     Active Substance: PANTOPRAZOLE SODIUM
     Indication: CROHN^S DISEASE
     Route: 065
  2. VITAMIN B12 [Concomitant]
     Active Substance: CYANOCOBALAMIN
     Indication: PRODUCT USED FOR UNKNOWN INDICATION
  3. HUMIRA [Suspect]
     Active Substance: ADALIMUMAB
     Route: 065
     Dates: start: 20141021, end: 20141103
  4. BONIVA [Concomitant]
     Active Substance: IBANDRONATE SODIUM
     Indication: OSTEOPOROSIS
  5. HUMIRA [Suspect]
     Active Substance: ADALIMUMAB
     Indication: CROHN^S DISEASE
     Dosage: LOADING DOSE
     Route: 065
     Dates: start: 200908, end: 200908
  6. NEXIUM [Suspect]
     Active Substance: ESOMEPRAZOLE MAGNESIUM
     Indication: CROHN^S DISEASE
     Route: 065
  7. IMODIUM [Suspect]
     Active Substance: LOPERAMIDE HYDROCHLORIDE
     Indication: DIARRHOEA
     Route: 065
  8. CONTRAST MEDIA [Suspect]
     Active Substance: UNSPECIFIED INGREDIENT
     Indication: IMAGING PROCEDURE
     Route: 065
  9. HUMIRA [Suspect]
     Active Substance: ADALIMUMAB
     Route: 065
     Dates: end: 200909
  10. PRILOSEC [Suspect]
     Active Substance: OMEPRAZOLE MAGNESIUM
     Indication: CROHN^S DISEASE
     Route: 065

REACTIONS (25)
  - Dehydration [Not Recovered/Not Resolved]
  - Drug ineffective [Unknown]
  - Nephropathy toxic [Recovered/Resolved]
  - Nausea [Recovered/Resolved]
  - Injection site erythema [Unknown]
  - Arthralgia [Unknown]
  - Postoperative adhesion [Unknown]
  - Renal failure [Not Recovered/Not Resolved]
  - Abdominal pain [Recovered/Resolved]
  - Abdominal adhesions [Not Recovered/Not Resolved]
  - Dehydration [Unknown]
  - Arthralgia [Not Recovered/Not Resolved]
  - Intestinal obstruction [Unknown]
  - Crohn^s disease [Not Recovered/Not Resolved]
  - Vomiting [Unknown]
  - Diarrhoea [Unknown]
  - Impaired healing [Not Recovered/Not Resolved]
  - Diarrhoea [Recovered/Resolved]
  - Arthralgia [Not Recovered/Not Resolved]
  - Injection site pain [Unknown]
  - Pigmentation disorder [Unknown]
  - Volvulus [Recovered/Resolved]
  - Drug ineffective [Recovered/Resolved]
  - Vomiting [Recovered/Resolved]
  - Myalgia [Unknown]

NARRATIVE: CASE EVENT DATE: 2009
